FAERS Safety Report 6458985-8 (Version None)
Quarter: 2009Q4

REPORT INFORMATION
  Report Type: 
  Country: None (occurrence: None)
  Receive Date: 20091127
  Receipt Date: 20091116
  Transmission Date: 20100525
  Serious: Yes (Hospitalization)
  Sender: FDA-Public Use
  Company Number: FR-JNJFOC-20091107711

PATIENT
  Sex: Male

DRUGS (7)
  1. CONTRAMAL LP [Suspect]
     Indication: PAIN
     Route: 048
     Dates: start: 20081119, end: 20081217
  2. RAVOTRIL [Suspect]
     Indication: DRUG USE FOR UNKNOWN INDICATION
     Route: 048
     Dates: start: 20081209, end: 20081217
  3. ZYLORIC [Concomitant]
     Route: 065
  4. SPASFON LYOC [Concomitant]
     Route: 065
  5. LOVENOX [Concomitant]
     Route: 058
  6. PARACETAMOL [Concomitant]
     Route: 065
  7. CONTRAMAL [Concomitant]
     Indication: PAIN
     Route: 048

REACTIONS (3)
  - ALTERED STATE OF CONSCIOUSNESS [None]
  - CONFUSIONAL STATE [None]
  - HALLUCINATION [None]
